FAERS Safety Report 17561144 (Version 1)
Quarter: 2020Q1

REPORT INFORMATION
  Report Type: Spontaneous
  Country: US (occurrence: US)
  Receive Date: 20200312
  Receipt Date: 20200312
  Transmission Date: 20200409
  Serious: Yes (Other)
  Sender: FDA-Public Use
  Company Number: None

PATIENT
  Age: 34 Year
  Sex: Female
  Weight: 64.86 kg

DRUGS (1)
  1. LEVOTHYROXINE 75 MCG [Suspect]
     Active Substance: LEVOTHYROXINE
     Route: 048
     Dates: start: 20170104, end: 20181127

REACTIONS (1)
  - Migraine [None]

NARRATIVE: CASE EVENT DATE: 20181111
